FAERS Safety Report 5019502-2 (Version None)
Quarter: 2006Q2

REPORT INFORMATION
  Report Type: 
  Country: None (occurrence: None)
  Receive Date: 20060605
  Receipt Date: 20060605
  Transmission Date: 20061013
  Serious: No
  Sender: FDA-Public Use
  Company Number: None

PATIENT
  Age: 35 Year
  Sex: Female
  Weight: 88.64 kg

DRUGS (2)
  1. ACYCLOVIR [Suspect]
     Indication: MENINGITIS VIRAL
     Dosage: Q8H IV
     Route: 042
     Dates: start: 20060420, end: 20060422
  2. IBUPROFEN [Concomitant]

REACTIONS (1)
  - RENAL FAILURE [None]
